FAERS Safety Report 4738795-X (Version None)
Quarter: 2005Q3

REPORT INFORMATION
  Report Type: 
  Country: None (occurrence: None)
  Receive Date: 20050804
  Receipt Date: 20050722
  Transmission Date: 20060218
  Serious: Yes (Hospitalization)
  Sender: FDA-Public Use
  Company Number: 2005106627

PATIENT
  Age: 72 Year
  Sex: Female
  Weight: 80 kg

DRUGS (5)
  1. CLINDAMYCIN HYDROCHLORIDE [Suspect]
     Indication: INFECTION
     Dosage: 1800 MG TID, INTRAVENOUS
     Route: 042
     Dates: start: 20050215, end: 20050416
  2. VANCOMYCIN [Suspect]
     Indication: INFECTION
     Dosage: 500 MG, INTRAVENOUS
     Route: 042
     Dates: start: 20050202, end: 20050416
  3. FOSFOMYCIN (FOSFOMYCIN) [Suspect]
     Indication: INFECTION
     Dosage: 12 GRAM (1 GRAM, TID), INTRAVENOUS
     Route: 042
     Dates: start: 20050202, end: 20050416
  4. IRBESARTAN [Concomitant]
  5. OMEPRAZOLE [Concomitant]

REACTIONS (1)
  - HEPATITIS CHOLESTATIC [None]
